FAERS Safety Report 7809956-8 (Version None)
Quarter: 2011Q4

REPORT INFORMATION
  Report Type: 
  Country: None (occurrence: None)
  Receive Date: 20111012
  Receipt Date: 20110930
  Transmission Date: 20120403
  Serious: Yes (Hospitalization)
  Sender: FDA-Public Use
  Company Number: PHHY2011BE86854

PATIENT
  Age: 33 Year
  Sex: Female

DRUGS (2)
  1. GILENYA [Suspect]
     Indication: RELAPSING-REMITTING MULTIPLE SCLEROSIS
     Dosage: 0.5 MG, DAILY
     Route: 048
     Dates: start: 20110927, end: 20110930
  2. SEDINAL [Concomitant]
     Dosage: UNK UKN, UNK
     Dates: start: 20110928

REACTIONS (5)
  - VERTIGO [None]
  - SKIN BURNING SENSATION [None]
  - ASTHENIA [None]
  - HOT FLUSH [None]
  - HYPOTENSION [None]
